FAERS Safety Report 21994657 (Version 3)
Quarter: 2023Q1

REPORT INFORMATION
  Report Type: Spontaneous
  Country: US (occurrence: US)
  Receive Date: 20230215
  Receipt Date: 20230306
  Transmission Date: 20230417
  Serious: Yes (Death, Life-Threatening, Hospitalization, Congenital Anomaly)
  Sender: FDA-Public Use
  Company Number: US-PFIZER INC-202300062448

PATIENT
  Sex: Female
  Weight: 1.045 kg

DRUGS (2)
  1. SODIUM CHLORIDE [Suspect]
     Active Substance: SODIUM CHLORIDE
     Dosage: 150 ML
     Route: 063
  2. SODIUM CHLORIDE [Suspect]
     Active Substance: SODIUM CHLORIDE
     Dosage: 320 ML
     Route: 063

REACTIONS (4)
  - Off label use [Fatal]
  - Neonatal respiratory failure [Fatal]
  - Renal aplasia [Fatal]
  - Premature baby [Fatal]
